FAERS Safety Report 14018769 (Version 2)
Quarter: 2017Q4

REPORT INFORMATION
  Report Type: Spontaneous
  Country: US (occurrence: US)
  Receive Date: 20170928
  Receipt Date: 20171003
  Transmission Date: 20180321
  Serious: No
  Sender: FDA-Public Use
  Company Number: US-PFIZER INC-2017417635

PATIENT
  Age: 29 Year
  Sex: Female

DRUGS (5)
  1. CRIZOTINIB [Suspect]
     Active Substance: CRIZOTINIB
     Indication: LUNG CANCER METASTATIC
     Dosage: UNK
  2. CERITINIB [Suspect]
     Active Substance: CERITINIB
     Indication: LUNG CANCER METASTATIC
     Dosage: UNK
  3. ALIMTA [Suspect]
     Active Substance: PEMETREXED DISODIUM
     Indication: LUNG CANCER METASTATIC
     Dosage: UNK
  4. CARBOPLATIN. [Suspect]
     Active Substance: CARBOPLATIN
     Indication: LUNG CANCER METASTATIC
     Dosage: UNK
  5. ALECTINIB. [Suspect]
     Active Substance: ALECTINIB
     Indication: LUNG CANCER METASTATIC
     Dosage: UNK

REACTIONS (1)
  - Neoplasm progression [Unknown]
